FAERS Safety Report 5068400-7 (Version None)
Quarter: 2006Q3

REPORT INFORMATION
  Report Type: 
  Country: None (occurrence: None)
  Receive Date: 20060802
  Receipt Date: 20050913
  Transmission Date: 20061208
  Serious: No
  Sender: FDA-Public Use
  Company Number: US-BRISTOL-MYERS SQUIBB COMPANY-13108659

PATIENT
  Age: 8 Decade
  Sex: Female

DRUGS (3)
  1. COUMADIN [Suspect]
     Indication: CARDIAC ANEURYSM
     Dosage: STARTED TAKING 4 MG ^A COUPLE OF YEARS AGO^.
     Route: 048
  2. LIBRIUM [Concomitant]
     Indication: STRESS
     Dosage: PRN (DOSAGE NOT PROVIDED); USUALLY TAKEM 3 X'S A DAY
     Dates: start: 20050805
  3. LIBRIUM [Concomitant]
     Indication: ANXIETY
     Dosage: PRN (DOSAGE NOT PROVIDED); USUALLY TAKEM 3 X'S A DAY
     Dates: start: 20050805

REACTIONS (1)
  - INTERNATIONAL NORMALISED RATIO DECREASED [None]
